FAERS Safety Report 5775253-8 (Version None)
Quarter: 2008Q2

REPORT INFORMATION
  Report Type: 
  Country: None (occurrence: None)
  Receive Date: 20080616
  Receipt Date: 20080616
  Transmission Date: 20081010
  Serious: Yes (Hospitalization)
  Sender: FDA-Public Use
  Company Number: None

PATIENT
  Age: 86 Year
  Sex: Male
  Weight: 90.26 kg

DRUGS (1)
  1. CLINDAMYCIN HCL [Suspect]
     Indication: UPPER RESPIRATORY TRACT INFECTION
     Dosage: MG PO
     Route: 048
     Dates: start: 20071127, end: 20071205

REACTIONS (6)
  - BLISTER [None]
  - OEDEMA PERIPHERAL [None]
  - RENAL FAILURE [None]
  - SENSORY LOSS [None]
  - SIMILAR REACTION ON PREVIOUS EXPOSURE TO DRUG [None]
  - SKIN ULCER [None]
